FAERS Safety Report 5595413-9 (Version None)
Quarter: 2008Q1

REPORT INFORMATION
  Report Type: 
  Country: None (occurrence: None)
  Receive Date: 20080118
  Receipt Date: 20080107
  Transmission Date: 20080703
  Serious: Yes (Other)
  Sender: FDA-Public Use
  Company Number: US-JNJFOC-20080101357

PATIENT
  Age: 66 Year
  Sex: Female
  Weight: 81.65 kg

DRUGS (5)
  1. EXTRA STRENGTH TYLENOL [Suspect]
     Indication: INSOMNIA
  2. HYDROCHLOROTHIAZIDE [Concomitant]
     Indication: DIURETIC THERAPY
  3. DILACOR XR [Concomitant]
     Indication: HYPERTENSION
  4. UNSPECIFIED EYE DROPS [Concomitant]
     Indication: GLAUCOMA
  5. VITAMINS [Concomitant]
     Indication: GENERAL PHYSICAL CONDITION

REACTIONS (2)
  - INCORRECT DRUG ADMINISTRATION DURATION [None]
  - PALPITATIONS [None]
